FAERS Safety Report 6243315-7 (Version None)
Quarter: 2009Q2

REPORT INFORMATION
  Report Type: 
  Country: None (occurrence: None)
  Receive Date: 20090622
  Receipt Date: 20090622
  Transmission Date: 20091009
  Serious: No
  Sender: FDA-Public Use
  Company Number: None

PATIENT
  Age: 52 Year
  Sex: Female
  Weight: 61.2356 kg

DRUGS (1)
  1. ZICAM COLD REMEDY NASAL GEL MATRIXX [Suspect]
     Indication: ANOSMIA
     Dosage: 1 SPRAY 1 X
     Dates: start: 20060518, end: 20060518

REACTIONS (8)
  - AGEUSIA [None]
  - ANHEDONIA [None]
  - ANOSMIA [None]
  - ANXIETY [None]
  - ECONOMIC PROBLEM [None]
  - EMOTIONAL DISTRESS [None]
  - NASAL DISCOMFORT [None]
  - PAIN [None]
